FAERS Safety Report 9314155 (Version 2)
Quarter: 2013Q2

REPORT INFORMATION
  Report Type: Spontaneous
  Country: US (occurrence: US)
  Receive Date: 20130529
  Receipt Date: 20130614
  Transmission Date: 20140414
  Serious: No
  Sender: FDA-Public Use
  Company Number: US-009507513-1305USA012676

PATIENT
  Sex: Female

DRUGS (8)
  1. JANUVIA [Suspect]
     Dosage: 100 MG, QD
     Route: 048
     Dates: start: 20120405
  2. GLIPIZIDE XL [Concomitant]
  3. SIMVASTATIN [Concomitant]
     Dosage: 20 MG, UNK
  4. OXYCODONE [Concomitant]
  5. COZAAR [Concomitant]
  6. FENOFIBRATE [Concomitant]
  7. CEPHALEXIN [Concomitant]
  8. LEVOTHYROXINE SODIUM [Concomitant]

REACTIONS (3)
  - Blood glucose increased [Not Recovered/Not Resolved]
  - Constipation [Not Recovered/Not Resolved]
  - Medication residue present [Not Recovered/Not Resolved]
